FAERS Safety Report 23483307 (Version 5)
Quarter: 2024Q3

REPORT INFORMATION
  Report Type: Spontaneous
  Country: US (occurrence: US)
  Receive Date: 20240205
  Receipt Date: 20240730
  Transmission Date: 20241016
  Serious: No
  Sender: PFIZER
  Company Number: US-PFIZER INC-PV202200094254

PATIENT
  Age: 80 Year
  Sex: Male

DRUGS (5)
  1. XELJANZ [Suspect]
     Active Substance: TOFACITINIB CITRATE
     Indication: Osteoarthritis
     Dosage: 5 MG TABLETS TWICE DAILY ON DAY ONE ALTERNATING THEN NEXT DAY ONE TABLET
     Route: 048
  2. XELJANZ [Suspect]
     Active Substance: TOFACITINIB CITRATE
     Indication: Polyarthritis
     Dosage: 5 MG TABLETS TWICE DAILY ON DAY ONE ALTERNATING THEN NEXT DAY ONE TABLET
     Route: 048
  3. XELJANZ [Suspect]
     Active Substance: TOFACITINIB CITRATE
     Dosage: XELJANZ 5 MG - 1 TWICE A DAY ON ONE DAY, ALTERNATING WITH THEN NEXT DAY 2 TAB QD
     Route: 048
  4. XELJANZ [Suspect]
     Active Substance: TOFACITINIB CITRATE
     Dosage: 5MG TWICE A DAY AND ALTERNATING TO ONE TABLET EVERY OTHER DAY
  5. XELJANZ [Suspect]
     Active Substance: TOFACITINIB CITRATE
     Dosage: 5MG TWICE A DAY AND ALTERNATING TO ONE TABLET EVERY OTHER DAY

REACTIONS (1)
  - Off label use [Unknown]
